FAERS Safety Report 13766491 (Version 2)
Quarter: 2017Q4

REPORT INFORMATION
  Report Type: Spontaneous
  Country: US (occurrence: US)
  Receive Date: 20170719
  Receipt Date: 20171107
  Transmission Date: 20180320
  Serious: Yes (Other)
  Sender: FDA-Public Use
  Company Number: US-AMGEN-USASP2017105721

PATIENT
  Age: 83 Year
  Sex: Female
  Weight: 64.4 kg

DRUGS (9)
  1. ENBREL [Suspect]
     Active Substance: ETANERCEPT
     Indication: RHEUMATOID ARTHRITIS
     Dosage: 50 MG, QWK
     Route: 065
     Dates: end: 201705
  2. TYLENOL [Concomitant]
     Active Substance: ACETAMINOPHEN
     Dosage: UNK UNK, BID(2 TABLETS EVERY 8 HOURS)
     Route: 065
     Dates: start: 201707
  3. XELJANZ [Suspect]
     Active Substance: TOFACITINIB CITRATE
     Indication: RHEUMATOID ARTHRITIS
     Dosage: 5 MG, BID
     Route: 048
     Dates: start: 20170322, end: 20170622
  4. TOPROL XL [Concomitant]
     Active Substance: METOPROLOL SUCCINATE
     Indication: CARDIAC DISORDER
     Dosage: UNK
     Route: 065
     Dates: start: 200410
  5. SPIRONOLACTONE A L [Concomitant]
     Active Substance: SPIRONOLACTONE
     Indication: CARDIAC DISORDER
     Dosage: UNK
     Route: 065
     Dates: start: 200410
  6. MOTRIN [Concomitant]
     Active Substance: IBUPROFEN
     Dosage: UNK
     Route: 065
  7. ISOSORBIDE MONONITRATE. [Concomitant]
     Active Substance: ISOSORBIDE MONONITRATE
     Indication: CARDIAC DISORDER
     Dosage: 30 MG, QD
     Route: 065
     Dates: start: 20161101
  8. IMURAN [Concomitant]
     Active Substance: AZATHIOPRINE
     Dosage: UNK
     Route: 065
  9. ENBREL [Suspect]
     Active Substance: ETANERCEPT
     Dosage: 50 MG, QWK
     Route: 065
     Dates: start: 201707

REACTIONS (10)
  - Surgery [Unknown]
  - Pain [Unknown]
  - Wrist deformity [Unknown]
  - Knee arthroplasty [Unknown]
  - Elbow operation [Unknown]
  - Foot operation [Unknown]
  - Toe amputation [Unknown]
  - Drug effect decreased [Unknown]
  - Coronary artery bypass [Unknown]
  - Vascular stent insertion [Unknown]
